FAERS Safety Report 10795036 (Version 2)
Quarter: 2015Q1

REPORT INFORMATION
  Report Type: Spontaneous
  Country: US (occurrence: US)
  Receive Date: 20150214
  Receipt Date: 20150216
  Transmission Date: 20150721
  Serious: No
  Sender: FDA-Public Use
  Company Number: US-GLAXOSMITHKLINE-A1073985A

PATIENT

DRUGS (1)
  1. NICODERM CQ [Suspect]
     Active Substance: NICOTINE
     Indication: EX-TOBACCO USER
     Dates: start: 20140517, end: 20140520

REACTIONS (6)
  - Disorientation [Unknown]
  - Palpitations [Recovered/Resolved]
  - Insomnia [Unknown]
  - Headache [Unknown]
  - Poor quality sleep [Unknown]
  - Sedation [Unknown]

NARRATIVE: CASE EVENT DATE: 20140520
